FAERS Safety Report 6440010-6 (Version None)
Quarter: 2009Q4

REPORT INFORMATION
  Report Type: 
  Country: None (occurrence: None)
  Receive Date: 20091112
  Receipt Date: 20091112
  Transmission Date: 20100525
  Serious: Yes (Other)
  Sender: FDA-Public Use
  Company Number: None

PATIENT
  Sex: Female
  Weight: 72.7 kg

DRUGS (2)
  1. METHOTREXATE [Suspect]
     Indication: ANKYLOSING SPONDYLITIS
     Dosage: 4 TAB/WEEK ORAL
     Route: 048
  2. METHOTREXATE [Suspect]
     Indication: PSORIATIC ARTHROPATHY
     Dosage: 4 TAB/WEEK ORAL
     Route: 048

REACTIONS (8)
  - DIPLOPIA [None]
  - DISTURBANCE IN ATTENTION [None]
  - DIZZINESS [None]
  - LOSS OF CONSCIOUSNESS [None]
  - SOMNOLENCE [None]
  - TREMOR [None]
  - UNRESPONSIVE TO STIMULI [None]
  - VISION BLURRED [None]
